FAERS Safety Report 18383848 (Version 2)
Quarter: 2020Q4

REPORT INFORMATION
  Report Type: Spontaneous
  Country: US (occurrence: US)
  Receive Date: 20201014
  Receipt Date: 20201021
  Transmission Date: 20210114
  Serious: Yes (Other)
  Sender: FDA-Public Use
  Company Number: US-BAUSCH-BL-2020-029422

PATIENT
  Age: 81 Year
  Sex: Female

DRUGS (7)
  1. PREDNISOLONE ACETATE. [Suspect]
     Active Substance: PREDNISOLONE ACETATE
     Indication: KERATIC PRECIPITATES
     Route: 061
  2. PREDNISOLONE ACETATE. [Suspect]
     Active Substance: PREDNISOLONE ACETATE
     Dosage: DOSE DECREASED
     Route: 061
  3. PREDNISOLONE ACETATE. [Suspect]
     Active Substance: PREDNISOLONE ACETATE
     Dosage: TAPERED
     Route: 061
  4. PREDNISOLONE ACETATE. [Suspect]
     Active Substance: PREDNISOLONE ACETATE
     Dosage: TAPERED
     Route: 061
  5. GANCICLOVIR. [Suspect]
     Active Substance: GANCICLOVIR
     Indication: CORNEAL ENDOTHELIITIS
  6. GANCICLOVIR. [Suspect]
     Active Substance: GANCICLOVIR
     Indication: CYTOMEGALOVIRUS INFECTION
     Dosage: OPHTHALMIC GEL
     Route: 061
  7. PREDNISOLONE ACETATE. [Suspect]
     Active Substance: PREDNISOLONE ACETATE
     Indication: IMMUNOSUPPRESSANT DRUG THERAPY
     Route: 061

REACTIONS (3)
  - Cytomegalovirus infection [Recovered/Resolved]
  - Corneal endotheliitis [Recovered/Resolved]
  - Therapy partial responder [Unknown]
